FAERS Safety Report 8967159 (Version 1)
Quarter: 2012Q4

REPORT INFORMATION
  Report Type: 
  Country: IT (occurrence: IT)
  Receive Date: 20121214
  Receipt Date: 20121214
  Transmission Date: 20130627
  Serious: Yes (Hospitalization)
  Sender: FDA-Public Use
  Company Number: IT-BAYER-2012-131446

PATIENT
  Age: 93 Year
  Sex: Male

DRUGS (3)
  1. ASPIRINETTA [Suspect]
     Indication: THROMBOEMBOLISM PROPHYLAXIS
     Dosage: 100 mg, Daily Dose
     Route: 048
     Dates: start: 20120101, end: 20120422
  2. OMEPRAZOLE [Concomitant]
     Dosage: Daily dose 1 DF
     Route: 048
  3. LENDORMIN [Concomitant]
     Dosage: Daily dose .25 mg
     Route: 048

REACTIONS (4)
  - Abnormal faeces [Recovering/Resolving]
  - Nausea [Recovering/Resolving]
  - Melaena [Recovering/Resolving]
  - Dehydration [Recovering/Resolving]
